FAERS Safety Report 8343897-5 (Version None)
Quarter: 2012Q2

REPORT INFORMATION
  Report Type: 
  Country: None (occurrence: None)
  Receive Date: 20120508
  Receipt Date: 20100831
  Transmission Date: 20120825
  Serious: Yes (Other)
  Sender: FDA-Public Use
  Company Number: US-TEVA-2010004654

PATIENT
  Sex: Female

DRUGS (2)
  1. RITUXAN [Concomitant]
     Indication: LYMPHOMA
  2. TREANDA [Suspect]
     Indication: LYMPHOMA
     Route: 042

REACTIONS (1)
  - BLOOD PRESSURE DECREASED [None]
